FAERS Safety Report 7294275-1 (Version None)
Quarter: 2011Q1

REPORT INFORMATION
  Report Type: 
  Country: None (occurrence: None)
  Receive Date: 20110215
  Receipt Date: 20110208
  Transmission Date: 20110831
  Serious: Yes (Other)
  Sender: FDA-Public Use
  Company Number: US-US-EMD SERONO, INC.-7041436

PATIENT
  Sex: Female

DRUGS (2)
  1. REBIF [Suspect]
     Indication: PRODUCT USED FOR UNKNOWN INDICATION
     Route: 058
     Dates: start: 20070808
  2. TYLENOL [Concomitant]
     Indication: PREMEDICATION

REACTIONS (3)
  - RHEUMATOID ARTHRITIS [None]
  - PANCREATITIS [None]
  - CONDITION AGGRAVATED [None]
